FAERS Safety Report 17314357 (Version 1)
Quarter: 2020Q1

REPORT INFORMATION
  Report Type: Spontaneous
  Country: US (occurrence: US)
  Receive Date: 20200124
  Receipt Date: 20200124
  Transmission Date: 20200409
  Serious: Yes (Other)
  Sender: FDA-Public Use
  Company Number: US-009507513-2001USA007581

PATIENT
  Age: 74 Year
  Sex: Female
  Weight: 44.44 kg

DRUGS (2)
  1. ATIVAN [Concomitant]
     Active Substance: LORAZEPAM
     Indication: PRODUCT USED FOR UNKNOWN INDICATION
     Dosage: UNK
     Route: 065
  2. REMERON [Suspect]
     Active Substance: MIRTAZAPINE
     Indication: SOMNOLENCE
     Dosage: ONCE DAILY AT NIGHT
     Route: 048
     Dates: start: 20180613

REACTIONS (9)
  - Product prescribing error [Unknown]
  - Irritability [Recovered/Resolved]
  - Drug ineffective [Unknown]
  - Amnesia [Recovered/Resolved]
  - Delusional disorder, persecutory type [Recovered/Resolved]
  - Insomnia [Recovered/Resolved]
  - Abnormal dreams [Recovered/Resolved]
  - Social avoidant behaviour [Recovered/Resolved]
  - Agitation [Recovered/Resolved]
